FAERS Safety Report 23857945 (Version 3)
Quarter: 2025Q4

REPORT INFORMATION
  Report Type: Spontaneous
  Country: US (occurrence: US)
  Receive Date: 20240515
  Receipt Date: 20251015
  Transmission Date: 20260117
  Serious: No
  Sender: BAYER HEALTHCARE PHARMACEUTICALS INC.
  Company Number: US-BAYER-2024A065538

PATIENT
  Age: 35 Year
  Sex: Female

DRUGS (1)
  1. MIRENA [Suspect]
     Active Substance: LEVONORGESTREL
     Indication: Heavy menstrual bleeding
     Dosage: 20?G/DAY
     Route: 015
     Dates: start: 20220831, end: 20231020

REACTIONS (9)
  - Heavy menstrual bleeding [Not Recovered/Not Resolved]
  - Mood swings [None]
  - Depression [Not Recovered/Not Resolved]
  - Anxiety [None]
  - Abdominal pain lower [Not Recovered/Not Resolved]
  - Night sweats [Not Recovered/Not Resolved]
  - Hot flush [None]
  - Genital haemorrhage [Not Recovered/Not Resolved]
  - Headache [None]

NARRATIVE: CASE EVENT DATE: 20220901
